FAERS Safety Report 6679560-6 (Version None)
Quarter: 2010Q2

REPORT INFORMATION
  Report Type: 
  Country: None (occurrence: None)
  Receive Date: 20100413
  Receipt Date: 20100407
  Transmission Date: 20101027
  Serious: Yes (Hospitalization, Other)
  Sender: FDA-Public Use
  Company Number: PHHY2010MX13270

PATIENT
  Age: 82 Year
  Sex: Male

DRUGS (2)
  1. STALEVO 100 [Suspect]
     Indication: PARKINSON'S DISEASE
     Dosage: 1 TABLET (200/100/25 MG) DAILY
     Route: 048
     Dates: start: 20100201
  2. ANESTHETICS NOS [Interacting]

REACTIONS (11)
  - DELIRIUM [None]
  - DRUG INTERACTION [None]
  - EMBOLISM [None]
  - FALL [None]
  - FOOT FRACTURE [None]
  - INCOHERENT [None]
  - LOSS OF CONSCIOUSNESS [None]
  - OSTEONECROSIS [None]
  - PARKINSON'S DISEASE [None]
  - STENT PLACEMENT [None]
  - TOE AMPUTATION [None]
